FAERS Safety Report 25908015 (Version 2)
Quarter: 2025Q4

REPORT INFORMATION
  Report Type: Report from Study
  Country: US (occurrence: US)
  Receive Date: 20251010
  Receipt Date: 20251113
  Transmission Date: 20260117
  Serious: Yes (Other)
  Sender: MALLINCKRODT
  Company Number: US-MALLINCKRODT-MNK202506219

PATIENT
  Sex: Female

DRUGS (1)
  1. CORTICOTROPIN [Suspect]
     Active Substance: CORTICOTROPIN
     Indication: Rheumatoid arthritis
     Dosage: UNKNOWN

REACTIONS (5)
  - Rheumatoid arthritis [Not Recovered/Not Resolved]
  - Limb injury [Unknown]
  - Localised infection [Unknown]
  - Injection site bruising [Unknown]
  - Therapeutic response shortened [Unknown]
